FAERS Safety Report 15340210 (Version 1)
Quarter: 2018Q3

REPORT INFORMATION
  Report Type: Spontaneous
  Country: US (occurrence: US)
  Receive Date: 20180831
  Receipt Date: 20180831
  Transmission Date: 20181010
  Serious: Yes (Other)
  Sender: FDA-Public Use
  Company Number: US-GILEAD-2018-0360022

PATIENT
  Sex: Male

DRUGS (1)
  1. YESCARTA [Suspect]
     Active Substance: AXICABTAGENE CILOLEUCEL
     Indication: PRODUCT USED FOR UNKNOWN INDICATION
     Dosage: UNK, SINGLE
     Route: 065
     Dates: start: 20180713, end: 20180713

REACTIONS (7)
  - Pyrexia [Recovered/Resolved]
  - Somnolence [Recovering/Resolving]
  - Neurotoxicity [Recovering/Resolving]
  - Feeling abnormal [Recovering/Resolving]
  - Pyrexia [Unknown]
  - Memory impairment [Recovering/Resolving]
  - Cytokine release syndrome [Unknown]

NARRATIVE: CASE EVENT DATE: 20180713
